FAERS Safety Report 7741986-7 (Version None)
Quarter: 2011Q3

REPORT INFORMATION
  Report Type: 
  Country: None (occurrence: None)
  Receive Date: 20110912
  Receipt Date: 20110901
  Transmission Date: 20111222
  Serious: Yes (Hospitalization)
  Sender: FDA-Public Use
  Company Number: US-JNJFOC-20110602091

PATIENT
  Sex: Male
  Weight: 42.6 kg

DRUGS (9)
  1. REMICADE [Suspect]
     Route: 042
     Dates: start: 20110502
  2. PREVPAC [Concomitant]
  3. NYSTATIN [Concomitant]
  4. MESALAMINE [Concomitant]
     Route: 054
  5. ZOFRAN [Concomitant]
  6. FLUCONAZOLE [Concomitant]
  7. REMICADE [Suspect]
     Indication: COLITIS ULCERATIVE
     Route: 042
     Dates: start: 20100806
  8. LOPERAMIDE HCL [Concomitant]
  9. PRILOSEC [Concomitant]

REACTIONS (1)
  - COLITIS ULCERATIVE [None]
